FAERS Safety Report 5488227-1 (Version None)
Quarter: 2007Q4

REPORT INFORMATION
  Report Type: 
  Country: None (occurrence: None)
  Receive Date: 20071017
  Receipt Date: 20071016
  Transmission Date: 20080405
  Serious: Yes (Life-Threatening)
  Sender: FDA-Public Use
  Company Number: A0687901A

PATIENT
  Age: 57 Year
  Sex: Female

DRUGS (2)
  1. ALLI [Suspect]
     Dates: start: 20070801, end: 20071015
  2. ARTHRITIS MEDICATION [Concomitant]

REACTIONS (1)
  - HEPATIC ENZYME INCREASED [None]
